FAERS Safety Report 5615657-7 (Version None)
Quarter: 2008Q1

REPORT INFORMATION
  Report Type: 
  Country: None (occurrence: None)
  Receive Date: 20080206
  Receipt Date: 20080128
  Transmission Date: 20080703
  Serious: Yes (Hospitalization, Other)
  Sender: FDA-Public Use
  Company Number: JP-NOVOPROD-270940

PATIENT
  Sex: Female
  Weight: 54 kg

DRUGS (2)
  1. NOVORAPID CHU FLEXPEN [Suspect]
     Indication: TYPE 1 DIABETES MELLITUS
     Dosage: 50 IU, UNK
     Route: 058
     Dates: start: 20071217
  2. LANTUS [Concomitant]
     Indication: TYPE 1 DIABETES MELLITUS
     Dosage: 28 IU, QD
     Dates: start: 20071217

REACTIONS (3)
  - DEVICE FAILURE [None]
  - GASTROENTERITIS [None]
  - HYPERGLYCAEMIA [None]
